FAERS Safety Report 10270381 (Version 1)
Quarter: 2014Q2

REPORT INFORMATION
  Report Type: Spontaneous
  Country: US (occurrence: None)
  Receive Date: 20140627
  Receipt Date: 20140627
  Transmission Date: 20141212
  Serious: Yes (Hospitalization)
  Sender: FDA-Public Use
  Company Number: None

PATIENT
  Age: 68 Year
  Sex: Female
  Weight: 47.6 kg

DRUGS (1)
  1. TAXOL [Suspect]

REACTIONS (3)
  - Enterococcal bacteraemia [None]
  - White blood cell count decreased [None]
  - Enterococcus test positive [None]
